FAERS Safety Report 5926040-9 (Version None)
Quarter: 2008Q3

REPORT INFORMATION
  Report Type: 
  Country: None (occurrence: None)
  Receive Date: 20080924
  Receipt Date: 20080819
  Transmission Date: 20090109
  Serious: No
  Sender: FDA-Public Use
  Company Number: US-WYE-H05657908

PATIENT

DRUGS (1)
  1. TORISEL [Suspect]

REACTIONS (2)
  - OEDEMA [None]
  - SKIN REACTION [None]
